FAERS Safety Report 8320277-X (Version None)
Quarter: 2012Q2

REPORT INFORMATION
  Report Type: 
  Country: None (occurrence: None)
  Receive Date: 20120426
  Receipt Date: 20120426
  Transmission Date: 20120825
  Serious: Yes (Hospitalization)
  Sender: FDA-Public Use
  Company Number: None

PATIENT
  Sex: Male

DRUGS (1)
  1. XELODA [Suspect]
     Indication: MALIGNANT ANORECTAL NEOPLASM
     Dosage: 2000 MG BID PO
     Route: 048
     Dates: start: 20120123, end: 20120301

REACTIONS (2)
  - DIARRHOEA [None]
  - APHAGIA [None]
